FAERS Safety Report 9019709 (Version 1)
Quarter: 2013Q1

REPORT INFORMATION
  Report Type: Spontaneous
  Country: US (occurrence: US)
  Receive Date: 20130118
  Receipt Date: 20130118
  Transmission Date: 20140127
  Serious: Yes (Other)
  Sender: FDA-Public Use
  Company Number: US-009507513-1301USA007663

PATIENT
  Sex: 0

DRUGS (1)
  1. FOSAMAX [Suspect]

REACTIONS (1)
  - Femur fracture [Unknown]
